FAERS Safety Report 13792294 (Version 1)
Quarter: 2017Q3

REPORT INFORMATION
  Report Type: Spontaneous
  Country: IN (occurrence: IN)
  Receive Date: 20170725
  Receipt Date: 20170725
  Transmission Date: 20171127
  Serious: Yes (Other)
  Sender: FDA-Public Use
  Company Number: IN-VALIDUS PHARMACEUTICALS LLC-IN-2017VAL001077

PATIENT
  Age: 29 Year
  Sex: Female

DRUGS (4)
  1. ACETYLSALICYLIC ACID [Suspect]
     Active Substance: ASPIRIN
     Indication: SKIN ULCER
     Dosage: UNK, QD
     Route: 048
  2. PENTOXIFYLLINE. [Suspect]
     Active Substance: PENTOXIFYLLINE
     Indication: SKIN ULCER
     Dosage: 1200 MG, QD
     Route: 048
  3. AZATHIOPRINE. [Suspect]
     Active Substance: AZATHIOPRINE
     Indication: SKIN ULCER
     Dosage: UNK, QD
     Route: 065
  4. CYCLOSPORINE. [Suspect]
     Active Substance: CYCLOSPORINE
     Indication: SKIN ULCER
     Dosage: UNK, QD

REACTIONS (6)
  - Hypertension [Unknown]
  - Therapeutic response decreased [Unknown]
  - Hirsutism [Unknown]
  - Central obesity [Unknown]
  - Cushingoid [Unknown]
  - Diabetes mellitus [Unknown]
